FAERS Safety Report 18684864 (Version 1)
Quarter: 2020Q4

REPORT INFORMATION
  Report Type: Spontaneous
  Country: US (occurrence: US)
  Receive Date: 20201230
  Receipt Date: 20201230
  Transmission Date: 20210114
  Serious: Yes (Hospitalization)
  Sender: FDA-Public Use
  Company Number: US-ELI_LILLY_AND_COMPANY-US202012012832

PATIENT
  Age: 68 Year
  Sex: Female
  Weight: 90 kg

DRUGS (1)
  1. BAMLANIVIMAB. [Suspect]
     Active Substance: BAMLANIVIMAB
     Indication: COVID-19
     Dosage: UNK, UNKNOWN
     Route: 065
     Dates: start: 20201219, end: 20201219

REACTIONS (5)
  - Tachycardia [Unknown]
  - Tremor [Unknown]
  - Pyrexia [Unknown]
  - Hypoxia [Unknown]
  - Chills [Unknown]

NARRATIVE: CASE EVENT DATE: 20201219
